FAERS Safety Report 5856610-8 (Version None)
Quarter: 2008Q3

REPORT INFORMATION
  Report Type: 
  Country: None (occurrence: None)
  Receive Date: 20080822
  Receipt Date: 20080822
  Transmission Date: 20090109
  Serious: Yes (Other)
  Sender: FDA-Public Use
  Company Number: None

PATIENT
  Age: 36 Year
  Sex: Male
  Weight: 90 kg

DRUGS (1)
  1. PROPECIA [Suspect]
     Indication: ANDROGENETIC ALOPECIA
     Dosage: 1 TABLET 1 PER DAY PO
     Route: 048
     Dates: start: 20070906, end: 20080821

REACTIONS (3)
  - ERECTILE DYSFUNCTION [None]
  - FEELING ABNORMAL [None]
  - LIBIDO DECREASED [None]
